FAERS Safety Report 16016814 (Version 2)
Quarter: 2019Q2

REPORT INFORMATION
  Report Type: Spontaneous
  Country: DE (occurrence: DE)
  Receive Date: 20190228
  Receipt Date: 20190415
  Transmission Date: 20190711
  Serious: Yes (Other)
  Sender: FDA-Public Use
  Company Number: DE-ASTELLAS-2019US007257

PATIENT
  Age: 70 Year
  Sex: Female

DRUGS (1)
  1. AMPHOTERICIN B, LIPOSOME [Suspect]
     Active Substance: AMPHOTERICIN B
     Indication: PRODUCT USED FOR UNKNOWN INDICATION
     Dosage: 1 MG/KG ( 20 ML APPLIED), UNKNOWN FREQ.
     Route: 065

REACTIONS (2)
  - Obstructive airways disorder [Recovered/Resolved]
  - Anaphylactic reaction [Recovered/Resolved]
